FAERS Safety Report 9338178 (Version 2)
Quarter: 2013Q3

REPORT INFORMATION
  Report Type: Report from Study
  Country: MX (occurrence: MX)
  Receive Date: 20130610
  Receipt Date: 20130722
  Transmission Date: 20140515
  Serious: Yes (Other)
  Sender: FDA-Public Use
  Company Number: MX-ROCHE-1232191

PATIENT
  Age: 64 Year
  Sex: Male

DRUGS (7)
  1. BLINDED PEG-INTERFERON ALFA 2A [Suspect]
     Indication: CHRONIC HEPATITIS C
     Route: 058
     Dates: start: 20130509, end: 20130518
  2. RIBAVIRIN [Suspect]
     Indication: CHRONIC HEPATITIS C
     Route: 048
     Dates: start: 20130509, end: 20130518
  3. BLINDED DACLATASVIR [Suspect]
     Indication: CHRONIC HEPATITIS C
     Route: 048
     Dates: start: 20130509, end: 20130518
  4. PEG-INTERFERON LAMBDA [Suspect]
     Indication: CHRONIC HEPATITIS C
     Route: 058
     Dates: start: 20130509, end: 20130518
  5. OMEPRAZOLE [Concomitant]
     Route: 065
     Dates: start: 20130223, end: 20130508
  6. RANITIDINE [Concomitant]
     Route: 065
     Dates: start: 20130223, end: 20130508
  7. RIOPAN (MEXICO) [Concomitant]
     Route: 065

REACTIONS (2)
  - Jaundice [Not Recovered/Not Resolved]
  - Hyperbilirubinaemia [Unknown]
